FAERS Safety Report 21656602 (Version 2)
Quarter: 2023Q2

REPORT INFORMATION
  Report Type: Spontaneous
  Country: US (occurrence: US)
  Receive Date: 20221129
  Receipt Date: 20230504
  Transmission Date: 20230721
  Serious: Yes (Hospitalization, Other)
  Sender: FDA-Public Use
  Company Number: US-ROCHE-2618733

PATIENT
  Age: 31 Year
  Sex: Male
  Weight: 80 kg

DRUGS (6)
  1. CLONAZEPAM [Suspect]
     Active Substance: CLONAZEPAM
     Indication: Bruxism
     Dosage: 2 MG, BID?DAILY DOSE: 4 MILLIGRAM
     Dates: start: 202207
  2. DANTROLENE [Suspect]
     Active Substance: DANTROLENE
     Indication: Gastrointestinal hypomotility
     Dates: start: 202207
  3. TYLENOL [Suspect]
     Active Substance: ACETAMINOPHEN
     Indication: Product used for unknown indication
     Dates: start: 202207
  4. RITUXAN [Suspect]
     Active Substance: RITUXIMAB
     Indication: Multiple sclerosis
     Dosage: IV DRIP. RITUXAN 1000 MG ON DAY 1 AND DAY 15 THEN EVERY 6 MONTHS
     Route: 042
  5. RITUXAN [Suspect]
     Active Substance: RITUXIMAB
     Indication: Encephalomyelitis
     Dosage: IV DRIP. RITUXAN 1000 MG ON DAY 1 AND DAY 15 THEN EVERY 6 MONTHS
     Route: 042
  6. RITUXAN [Suspect]
     Active Substance: RITUXIMAB
     Indication: Encephalitis
     Dosage: IV DRIP. RITUXAN 1000 MG ON DAY 1 AND DAY 15 THEN EVERY 6 MONTHS
     Route: 042

REACTIONS (14)
  - Pneumonia [Unknown]
  - Trismus [Unknown]
  - Oral disorder [Unknown]
  - Oxygen saturation decreased [Unknown]
  - Abdominal distension [Recovering/Resolving]
  - Seizure [Recovered/Resolved with Sequelae]
  - Hypothermia [Recovered/Resolved]
  - Vomiting [Recovered/Resolved]
  - Flatulence [Not Recovered/Not Resolved]
  - Blister [Not Recovered/Not Resolved]
  - Pyrexia [Unknown]
  - Hepatic enzyme increased [Recovered/Resolved]
  - Product use in unapproved indication [Unknown]
  - Pneumonia [Unknown]

NARRATIVE: CASE EVENT DATE: 20220901
